FAERS Safety Report 14695276 (Version 5)
Quarter: 2018Q2

REPORT INFORMATION
  Report Type: Spontaneous
  Country: US (occurrence: US)
  Receive Date: 20180329
  Receipt Date: 20180611
  Transmission Date: 20180711
  Serious: Yes (Death, Hospitalization)
  Sender: FDA-Public Use
  Company Number: US-ACTELION-A-NJ2018-169888

PATIENT
  Age: 47 Year
  Sex: Female
  Weight: 156.46 kg

DRUGS (2)
  1. VELETRI [Suspect]
     Active Substance: EPOPROSTENOL
     Indication: PULMONARY ARTERIAL HYPERTENSION
     Dosage: 19 NG/KG, PER MIN
     Route: 042
  2. REVATIO [Concomitant]
     Active Substance: SILDENAFIL CITRATE

REACTIONS (4)
  - Liver disorder [Unknown]
  - Acute kidney injury [Unknown]
  - Death [Fatal]
  - Blood creatinine abnormal [Unknown]

NARRATIVE: CASE EVENT DATE: 20180530
